FAERS Safety Report 7202462-3 (Version None)
Quarter: 2010Q4

REPORT INFORMATION
  Report Type: 
  Country: None (occurrence: None)
  Receive Date: 20101229
  Receipt Date: 20101221
  Transmission Date: 20110411
  Serious: Yes (Hospitalization)
  Sender: FDA-Public Use
  Company Number: B0690357A

PATIENT
  Sex: Female

DRUGS (1)
  1. IMIJECT [Suspect]
     Indication: MIGRAINE
     Dosage: 6MG SEE DOSAGE TEXT
     Route: 058
     Dates: start: 20060101

REACTIONS (4)
  - ERYTHEMA MULTIFORME [None]
  - MUCOSAL EROSION [None]
  - SKIN LESION [None]
  - STOMATITIS [None]
